FAERS Safety Report 14543860 (Version 1)
Quarter: 2018Q1

REPORT INFORMATION
  Report Type: Spontaneous
  Country: US (occurrence: US)
  Receive Date: 20180216
  Receipt Date: 20180216
  Transmission Date: 20180509
  Serious: Yes (Life-Threatening, Hospitalization)
  Sender: FDA-Public Use
  Company Number: US-C B FLEET CO INC-201802-US-000306

PATIENT
  Age: 84 Year
  Sex: Male

DRUGS (5)
  1. BETA BLOCKER UNKNOWN [Concomitant]
     Indication: PRODUCT USED FOR UNKNOWN INDICATION
  2. STATIN UNKNOWN [Concomitant]
     Indication: PRODUCT USED FOR UNKNOWN INDICATION
  3. ASPIRIN. [Concomitant]
     Active Substance: ASPIRIN
     Indication: PRODUCT USED FOR UNKNOWN INDICATION
  4. ORAL HYPOGLYCEMIC AGENT UNKNOWN [Concomitant]
     Indication: PRODUCT USED FOR UNKNOWN INDICATION
  5. MINERAL OIL - ORAL [Suspect]
     Active Substance: MINERAL OIL
     Indication: CONSTIPATION
     Route: 048

REACTIONS (6)
  - Pneumonia lipoid [Unknown]
  - Dyspnoea exertional [Recovered/Resolved]
  - Cardiac failure congestive [Unknown]
  - Incorrect drug administration duration [None]
  - Dyspnoea [Recovered/Resolved]
  - Pleural effusion [Unknown]
